FAERS Safety Report 7320724-6 (Version None)
Quarter: 2011Q1

REPORT INFORMATION
  Report Type: 
  Country: None (occurrence: None)
  Receive Date: 20110228
  Receipt Date: 20110222
  Transmission Date: 20110831
  Serious: Yes (Hospitalization, Other)
  Sender: FDA-Public Use
  Company Number: US-PFIZER INC-2010160623

PATIENT
  Sex: Male

DRUGS (4)
  1. CHANTIX [Suspect]
     Indication: SMOKING CESSATION THERAPY
     Dosage: 0.5MG, 1MG
     Dates: start: 20081205, end: 20090301
  2. NADOLOL [Concomitant]
     Indication: HYPERTENSION
     Dosage: UNK
  3. LORAZEPAM [Concomitant]
     Indication: ANXIETY
     Dosage: UNK
     Dates: start: 20080701, end: 20090101
  4. THIAMINE [Concomitant]
     Indication: HYPOVITAMINOSIS
     Dosage: UNK
     Dates: start: 20070101, end: 20090101

REACTIONS (9)
  - ANXIETY [None]
  - INSOMNIA [None]
  - VISUAL IMPAIRMENT [None]
  - SUICIDAL IDEATION [None]
  - NIGHTMARE [None]
  - MENTAL DISORDER [None]
  - COGNITIVE DISORDER [None]
  - DEPRESSION [None]
  - CONVULSION [None]
